FAERS Safety Report 9737489 (Version 2)
Quarter: 2013Q4

REPORT INFORMATION
  Report Type: Spontaneous
  Country: IT (occurrence: IT)
  Receive Date: 20131206
  Receipt Date: 20131206
  Transmission Date: 20140711
  Serious: Yes (Other)
  Sender: FDA-Public Use
  Company Number: IT-ASTRAZENECA-2013SE86900

PATIENT
  Age: 24669 Day
  Sex: Male

DRUGS (7)
  1. CRESTOR [Suspect]
     Route: 048
     Dates: start: 20110101, end: 20131107
  2. PRADAXA [Suspect]
     Indication: ATRIAL FIBRILLATION
     Route: 048
     Dates: start: 20130805, end: 20131125
  3. TENORMIN [Concomitant]
     Route: 048
  4. PLAVIX [Concomitant]
     Route: 048
  5. PERINDOPRIL EG [Concomitant]
     Route: 048
  6. LIMPIDEX [Concomitant]
     Route: 048
  7. SEACOR [Concomitant]
     Route: 048

REACTIONS (5)
  - Angina unstable [Unknown]
  - Atrial flutter [Unknown]
  - Low density lipoprotein abnormal [Unknown]
  - Proteinuria [Unknown]
  - Microalbuminuria [Unknown]
